FAERS Safety Report 23049962 (Version 1)
Quarter: 2023Q4

REPORT INFORMATION
  Report Type: Spontaneous
  Country: TR (occurrence: TR)
  Receive Date: 20231010
  Receipt Date: 20231010
  Transmission Date: 20240109
  Serious: Yes (Life-Threatening, Hospitalization)
  Sender: FDA-Public Use
  Company Number: TR-MYLANLABS-2023M1106346

PATIENT
  Age: 62 Year
  Sex: Male

DRUGS (5)
  1. CLOZAPINE [Suspect]
     Active Substance: CLOZAPINE
     Indication: Schizophrenia
     Dosage: 300 MILLIGRAM, QD
     Route: 065
  2. CLOZAPINE [Suspect]
     Active Substance: CLOZAPINE
     Dosage: 25 MILLIGRAM, QD (THEN THE DOSE WAS GRADUALLY INCREASED TO 300 MG/DAY OVER A PERIOD OF 12 DAYS)
     Route: 065
  3. CLOZAPINE [Suspect]
     Active Substance: CLOZAPINE
     Dosage: 300 MILLIGRAM, QD (THEN THE DOSE WAS GRADUALLY INCREASED TO 300 MG/DAY OVER A PERIOD OF 12 DAYS)
     Route: 065
  4. CHLORPROMAZINE [Suspect]
     Active Substance: CHLORPROMAZINE
     Indication: Schizophrenia
     Dosage: 100 MILLIGRAM, QD
     Route: 065
  5. CHLORPROMAZINE [Suspect]
     Active Substance: CHLORPROMAZINE
     Dosage: 50 MILLIGRAM, QD (FIRST DISCONTINUED ON ITS OWN AND THEN DRUG WAS REINTRODUCED)
     Route: 065

REACTIONS (7)
  - Pneumonia aspiration [Recovering/Resolving]
  - Respiratory arrest [Recovering/Resolving]
  - Pneumonia bacterial [Recovering/Resolving]
  - Salivary hypersecretion [Unknown]
  - Sedation [Unknown]
  - Schizophrenia [Unknown]
  - Intentional product misuse [Unknown]
